FAERS Safety Report 16687151 (Version 1)
Quarter: 2019Q3

REPORT INFORMATION
  Report Type: Spontaneous
  Country: US (occurrence: US)
  Receive Date: 20190624
  Receipt Date: 20190624
  Transmission Date: 20191004
  Serious: Yes (Other)
  Sender: FDA-Public Use
  Company Number: None

PATIENT
  Age: 76 Year
  Sex: Female
  Weight: 60.33 kg

DRUGS (22)
  1. HYDROXYCHLOROQUINE [Concomitant]
     Active Substance: HYDROXYCHLOROQUINE
  2. CLONAZEPAM. [Concomitant]
     Active Substance: CLONAZEPAM
  3. TRIAMTERENE. [Concomitant]
     Active Substance: TRIAMTERENE
  4. VIT D [Concomitant]
     Active Substance: VITAMIN D NOS
  5. DICYCLOMINE [Concomitant]
     Active Substance: DICYCLOMINE HYDROCHLORIDE
  6. NORTRIPTYLINE [Concomitant]
     Active Substance: NORTRIPTYLINE
  7. FISH OIL [Concomitant]
     Active Substance: FISH OIL
  8. VITAMIN E [Concomitant]
     Active Substance: .ALPHA.-TOCOPHEROL
  9. VALACYCLOVIR [Concomitant]
     Active Substance: VALACYCLOVIR HYDROCHLORIDE
  10. LEVOTHYROXIN [Concomitant]
     Active Substance: LEVOTHYROXINE
  11. COLESTIPOL [Concomitant]
     Active Substance: COLESTIPOL
  12. VITAMIN B-COMPLEX [Concomitant]
     Active Substance: DEXPANTHENOL\NIACINAMIDE\PYRIDOXINE HYDROCHLORIDE\RIBOFLAVIN 5^-PHOSPHATE SODIUM\THIAMINE HYDROCHLORIDE
  13. NORTRIPTYLINE [Suspect]
     Active Substance: NORTRIPTYLINE
     Indication: PAIN
     Dosage: ?          QUANTITY:1- 2 PILLS;?
     Route: 048
     Dates: start: 20190518, end: 20190521
  14. KETOCONAZOLE. [Concomitant]
     Active Substance: KETOCONAZOLE
  15. VITAMIN C [Concomitant]
     Active Substance: ASCORBIC ACID
  16. COQ10 [Concomitant]
     Active Substance: UBIDECARENONE
  17. CELEBREX [Concomitant]
     Active Substance: CELECOXIB
  18. BETAMETHASONE VALERATE. [Concomitant]
     Active Substance: BETAMETHASONE VALERATE
  19. LEVOCETIRIZINE [Concomitant]
     Active Substance: LEVOCETIRIZINE
  20. GABAPENTIN. [Concomitant]
     Active Substance: GABAPENTIN
  21. IBANDRONATE [Concomitant]
     Active Substance: IBANDRONATE SODIUM
  22. NORTRIPTYLINE [Suspect]
     Active Substance: NORTRIPTYLINE
     Indication: FIBROMYALGIA
     Dosage: ?          QUANTITY:1- 2 PILLS;?
     Route: 048
     Dates: start: 20190518, end: 20190521

REACTIONS (5)
  - Product physical issue [None]
  - Choking [None]
  - Dyspnoea [None]
  - Product taste abnormal [None]
  - Product use complaint [None]

NARRATIVE: CASE EVENT DATE: 20190511
